FAERS Safety Report 23634047 (Version 2)
Quarter: 2024Q2

REPORT INFORMATION
  Report Type: Report from Study
  Country: BR (occurrence: None)
  Receive Date: 20240314
  Receipt Date: 20240415
  Transmission Date: 20240716
  Serious: Yes (Hospitalization, Other)
  Sender: FDA-Public Use
  Company Number: 2024A059049

PATIENT
  Age: 25304 Day
  Sex: Male
  Weight: 71 kg

DRUGS (12)
  1. DURVALUMAB [Suspect]
     Active Substance: DURVALUMAB
     Indication: Hepatocellular carcinoma
     Route: 042
     Dates: start: 20231211, end: 20231211
  2. DURVALUMAB [Suspect]
     Active Substance: DURVALUMAB
     Indication: Hepatocellular carcinoma
     Route: 042
     Dates: start: 20231113, end: 20231113
  3. DURVALUMAB [Suspect]
     Active Substance: DURVALUMAB
     Indication: Hepatocellular carcinoma
     Route: 042
     Dates: start: 20230428, end: 20230428
  4. DURVALUMAB [Suspect]
     Active Substance: DURVALUMAB
     Indication: Hepatocellular carcinoma
     Route: 042
     Dates: start: 20230526, end: 20230526
  5. DURVALUMAB [Suspect]
     Active Substance: DURVALUMAB
     Indication: Hepatocellular carcinoma
     Route: 042
     Dates: start: 20230623, end: 20230623
  6. DURVALUMAB [Suspect]
     Active Substance: DURVALUMAB
     Indication: Hepatocellular carcinoma
     Route: 042
     Dates: start: 20230721, end: 20230721
  7. DURVALUMAB [Suspect]
     Active Substance: DURVALUMAB
     Indication: Hepatocellular carcinoma
     Route: 042
     Dates: start: 20230818, end: 20230818
  8. DURVALUMAB [Suspect]
     Active Substance: DURVALUMAB
     Indication: Hepatocellular carcinoma
     Route: 042
     Dates: start: 20230915, end: 20230915
  9. DURVALUMAB [Suspect]
     Active Substance: DURVALUMAB
     Indication: Hepatocellular carcinoma
     Route: 042
     Dates: start: 20231016, end: 20231016
  10. DURVALUMAB [Suspect]
     Active Substance: DURVALUMAB
     Indication: Hepatocellular carcinoma
     Route: 042
     Dates: start: 20240108, end: 20240108
  11. DURVALUMAB [Suspect]
     Active Substance: DURVALUMAB
     Indication: Hepatocellular carcinoma
     Route: 042
     Dates: start: 20240205, end: 20240205
  12. DURVALUMAB\TREMELIMUMAB [Suspect]
     Active Substance: DURVALUMAB\TREMELIMUMAB
     Indication: Hepatocellular carcinoma
     Dosage: ONCE
     Route: 042
     Dates: start: 20230331, end: 20230331

REACTIONS (2)
  - Haemoptysis [Recovered/Resolved]
  - Pulmonary alveolar haemorrhage [Unknown]

NARRATIVE: CASE EVENT DATE: 20240301
